FAERS Safety Report 5254976-3 (Version None)
Quarter: 2007Q1

REPORT INFORMATION
  Report Type: 
  Country: None (occurrence: None)
  Receive Date: 20070305
  Receipt Date: 20070219
  Transmission Date: 20070707
  Serious: Yes (Life-Threatening, Hospitalization, Other)
  Sender: FDA-Public Use
  Company Number: JP-BRISTOL-MYERS SQUIBB COMPANY-13679105

PATIENT
  Age: 62 Year
  Sex: Female

DRUGS (2)
  1. GATIFLO TABS 100 MG [Suspect]
     Indication: PNEUMONIA
     Route: 048
     Dates: start: 20070129, end: 20070204
  2. CLARITHROMYCIN [Concomitant]
     Route: 048

REACTIONS (4)
  - DIABETIC HYPERGLYCAEMIC COMA [None]
  - DISSEMINATED INTRAVASCULAR COAGULATION [None]
  - HYPERGLYCAEMIA [None]
  - THROMBOCYTOPENIA [None]
